FAERS Safety Report 22040131 (Version 36)
Quarter: 2025Q4

REPORT INFORMATION
  Report Type: Spontaneous
  Country: CA (occurrence: CA)
  Receive Date: 20230227
  Receipt Date: 20251006
  Transmission Date: 20260117
  Serious: Yes (Hospitalization, Other)
  Sender: CELLTRION
  Company Number: CA-CELLTRION INC.-2022CA018898

PATIENT

DRUGS (32)
  1. INFLECTRA [Suspect]
     Active Substance: INFLIXIMAB-DYYB
     Indication: Crohn^s disease
     Dosage: 5 MG/KG, Q 0, 2, 6 WEEKS THEN EVERY 8 WEEKS
     Dates: start: 20221114
  2. INFLECTRA [Suspect]
     Active Substance: INFLIXIMAB-DYYB
     Dosage: 5 MG/KG, 0, 2, 6 WEEKS THEN EVERY 8 WEEKS
     Dates: start: 20221128
  3. INFLECTRA [Suspect]
     Active Substance: INFLIXIMAB-DYYB
     Dosage: 5 MG/KG, 0, 2, 6 WEEKS THEN EVERY 8 WEEKS
     Dates: start: 20221228
  4. INFLECTRA [Suspect]
     Active Substance: INFLIXIMAB-DYYB
     Dosage: 5 MG/KG STAT DOSE AND THEN 10MG/KG EVERY 4 WEEKS (Q 0, 2, 6 WEEKS THEN EVERY 8 WEEKS)
     Dates: start: 20230116, end: 20230116
  5. INFLECTRA [Suspect]
     Active Substance: INFLIXIMAB-DYYB
     Dosage: 10 MG/KG (760 MG), EVERY 4 WEEKS
     Dates: start: 20230217
  6. INFLECTRA [Suspect]
     Active Substance: INFLIXIMAB-DYYB
     Dosage: 780 MG, EVERY 4 WEEKS
     Dates: start: 20230317
  7. INFLECTRA [Suspect]
     Active Substance: INFLIXIMAB-DYYB
     Dosage: 10 MG/KG, EVERY 4 WEEKS
     Dates: start: 20230609
  8. INFLECTRA [Suspect]
     Active Substance: INFLIXIMAB-DYYB
     Dosage: 10 MG/KG (770 MG), EVERY 4 WEEKS
     Dates: start: 20230705
  9. INFLECTRA [Suspect]
     Active Substance: INFLIXIMAB-DYYB
     Dosage: 10 MG/KG (800 MG), EVERY 4 WEEKS
     Dates: start: 20230804
  10. INFLECTRA [Suspect]
     Active Substance: INFLIXIMAB-DYYB
     Dosage: 10 MG/KG (800 MG), EVERY 4 WEEKS
     Dates: start: 20230830
  11. INFLECTRA [Suspect]
     Active Substance: INFLIXIMAB-DYYB
     Dosage: 10 MG/KG (800 MG), EVERY 4 WEEKS
     Dates: start: 20230927
  12. INFLECTRA [Suspect]
     Active Substance: INFLIXIMAB-DYYB
     Dosage: 10 MG/KG (830 MG), AFTER 4 WEEKS AND 1 DAY (PRESCRIBED EVERY 4 WEEKS)
     Dates: start: 20231026
  13. INFLECTRA [Suspect]
     Active Substance: INFLIXIMAB-DYYB
     Dosage: 10 MG/KG (820 MG), EVERY 4 WEEKS
     Dates: start: 20231122
  14. INFLECTRA [Suspect]
     Active Substance: INFLIXIMAB-DYYB
     Dosage: 10 MG/KG (800 MG), EVERY 4 WEEKS
     Dates: start: 20231220, end: 20231220
  15. INFLECTRA [Suspect]
     Active Substance: INFLIXIMAB-DYYB
     Dosage: 10 MG/KG (800 MG), EVERY 4 WEEKS
     Dates: start: 20240117
  16. INFLECTRA [Suspect]
     Active Substance: INFLIXIMAB-DYYB
     Dosage: 10 MG/KG (800 MG), EVERY 4 WEEKS
     Dates: start: 20240315
  17. INFLECTRA [Suspect]
     Active Substance: INFLIXIMAB-DYYB
     Dosage: 10 MG/KG (790 MG), EVERY 4 WEEKS
     Dates: start: 20240412
  18. INFLECTRA [Suspect]
     Active Substance: INFLIXIMAB-DYYB
     Dosage: 790 MG, EVERY 4 WEEKS
     Dates: start: 20240510
  19. INFLECTRA [Suspect]
     Active Substance: INFLIXIMAB-DYYB
     Dosage: 770 MG, AFTER 6 WEEKS AND 5 DAYS (PRESCRIBED 10 MG/KG, EVERY 4 WEEKS)
     Dates: start: 20240626
  20. INFLECTRA [Suspect]
     Active Substance: INFLIXIMAB-DYYB
     Dosage: 730 MG, AFTER 4 WEEKS AND 2 DAYS (PRESCRIBED 10MG/KG, EVERY 4 WEEKS)
     Dates: start: 20240726
  21. INFLECTRA [Suspect]
     Active Substance: INFLIXIMAB-DYYB
     Dosage: 10 MG/KG (750 MG), EVERY 4 WEEKS
     Dates: start: 20240823
  22. INFLECTRA [Suspect]
     Active Substance: INFLIXIMAB-DYYB
     Dosage: 10 MG/KG (760 MG), EVERY 4 WEEKS
     Dates: start: 20240920
  23. INFLECTRA [Suspect]
     Active Substance: INFLIXIMAB-DYYB
     Dosage: 750 MG (10MG/KG), EVERY 4 WEEKS
     Dates: start: 20241018
  24. INFLECTRA [Suspect]
     Active Substance: INFLIXIMAB-DYYB
     Dosage: 740 MG, EVERY 4 WEEKS (10 MG/KG, EVERY 4 WEEKS)
     Dates: start: 20241115
  25. INFLECTRA [Suspect]
     Active Substance: INFLIXIMAB-DYYB
     Dosage: 750 MG, AFTER 4 WEEKS (10 MG/KG, EVERY 4 WEEKS)
     Dates: start: 20241213
  26. INFLECTRA [Suspect]
     Active Substance: INFLIXIMAB-DYYB
     Dosage: 760 MG (10 MG/KG), EVERY 4 WEEKS (10 MG/KG, EVERY 4 WEEKS)
     Dates: start: 20250109
  27. INFLECTRA [Suspect]
     Active Substance: INFLIXIMAB-DYYB
     Dosage: 10 MG/KG, EVERY 4 WEEKS
     Dates: start: 20250206
  28. INFLECTRA [Suspect]
     Active Substance: INFLIXIMAB-DYYB
     Dosage: 780 MG, EVERY 4 WEEKS
     Dates: start: 20250306
  29. INFLECTRA [Suspect]
     Active Substance: INFLIXIMAB-DYYB
     Dosage: 790 MG, 4 WEEKS (10 MG/KG, EVERY 4 WEEKS)
     Dates: start: 20250403
  30. CORTISONE [Concomitant]
     Active Substance: CORTISONE
     Dosage: 1 DF
  31. CORTISONE [Concomitant]
     Active Substance: CORTISONE
     Dosage: 10 MG, UNKNOWN FREQUENCY
     Dates: start: 20221007, end: 20230106
  32. CORTISONE [Concomitant]
     Active Substance: CORTISONE
     Dosage: 20 MG, UNKNOWN FREQUENCY
     Route: 048
     Dates: start: 20230701, end: 20230829

REACTIONS (24)
  - Clostridium difficile colitis [Recovered/Resolved]
  - Pyelonephritis [Recovered/Resolved]
  - Influenza [Unknown]
  - Condition aggravated [Recovering/Resolving]
  - Blood pressure increased [Not Recovered/Not Resolved]
  - Gastrointestinal disorder [Not Recovered/Not Resolved]
  - Intestinal resection [Not Recovered/Not Resolved]
  - Polyp [Unknown]
  - Haemorrhoids [Not Recovered/Not Resolved]
  - Decreased appetite [Recovering/Resolving]
  - Aphthous ulcer [Recovered/Resolved]
  - Arthralgia [Recovered/Resolved]
  - Fatigue [Not Recovered/Not Resolved]
  - Scar [Unknown]
  - Acne [Not Recovered/Not Resolved]
  - Psoriasis [Unknown]
  - Arthritis [Unknown]
  - Myalgia [Recovered/Resolved]
  - COVID-19 [Recovered/Resolved]
  - Drug level above therapeutic [Unknown]
  - Therapeutic response shortened [Unknown]
  - Off label use [Unknown]
  - Off label use [Unknown]
  - Intentional product use issue [Unknown]

NARRATIVE: CASE EVENT DATE: 20221114
